FAERS Safety Report 9308165 (Version 1)
Quarter: 2013Q2

REPORT INFORMATION
  Report Type: Spontaneous
  Country: US (occurrence: US)
  Receive Date: 20130524
  Receipt Date: 20130524
  Transmission Date: 20140414
  Serious: Yes (Other)
  Sender: FDA-Public Use
  Company Number: US-TEVA-405493USA

PATIENT
  Sex: Male

DRUGS (1)
  1. TREANDA [Suspect]
     Indication: NON-HODGKIN^S LYMPHOMA UNSPECIFIED HISTOLOGY INDOLENT

REACTIONS (2)
  - Bone marrow failure [Unknown]
  - Incorrect dose administered [Unknown]
